FAERS Safety Report 9657957 (Version 2)
Quarter: 2013Q4

REPORT INFORMATION
  Report Type: Spontaneous
  Country: US (occurrence: US)
  Receive Date: 20131030
  Receipt Date: 20131125
  Transmission Date: 20140711
  Serious: Yes (Hospitalization)
  Sender: FDA-Public Use
  Company Number: US-BAXTER-2013BAX041756

PATIENT
  Sex: Male

DRUGS (6)
  1. DIANEAL LOW CALCIUM [Suspect]
     Indication: RENAL FAILURE CHRONIC
     Route: 033
     Dates: start: 201206
  2. DIANEAL LOW CALCIUM [Suspect]
     Route: 033
     Dates: start: 20131016
  3. DIANEAL LOW CALCIUM [Suspect]
     Indication: RENAL FAILURE CHRONIC
     Route: 033
     Dates: start: 201206
  4. DIANEAL LOW CALCIUM [Suspect]
     Route: 033
     Dates: start: 20131016
  5. DIANEAL LOW CALCIUM [Suspect]
     Indication: RENAL FAILURE CHRONIC
     Route: 033
     Dates: start: 201206
  6. DIANEAL LOW CALCIUM [Suspect]
     Route: 033
     Dates: start: 20131016

REACTIONS (2)
  - Pulmonary mass [Recovering/Resolving]
  - Pneumonia [Recovering/Resolving]
